FAERS Safety Report 21217945 (Version 1)
Quarter: 2022Q3

REPORT INFORMATION
  Report Type: Spontaneous
  Country: US (occurrence: None)
  Receive Date: 20220816
  Receipt Date: 20220816
  Transmission Date: 20221026
  Serious: No
  Sender: FDA-Public Use
  Company Number: US-ROCHE-2879677

PATIENT
  Sex: Female
  Weight: 69.008 kg

DRUGS (3)
  1. PEGASYS [Suspect]
     Active Substance: PEGINTERFERON ALFA-2A
     Indication: Thrombocytosis
     Route: 058
     Dates: start: 202102, end: 2021
  2. PEGASYS [Suspect]
     Active Substance: PEGINTERFERON ALFA-2A
     Indication: Polycythaemia vera
     Route: 058
     Dates: start: 2021
  3. HYDROXYUREA [Concomitant]
     Active Substance: HYDROXYUREA

REACTIONS (9)
  - Maternal exposure during pregnancy [Unknown]
  - Platelet count increased [Recovered/Resolved]
  - Fatigue [Not Recovered/Not Resolved]
  - Red blood cell count increased [Not Recovered/Not Resolved]
  - Headache [Recovered/Resolved]
  - Ocular discomfort [Recovered/Resolved]
  - Pain [Unknown]
  - Fluid retention [Recovered/Resolved]
  - Off label use [Unknown]
